FAERS Safety Report 20550977 (Version 4)
Quarter: 2022Q2

REPORT INFORMATION
  Report Type: Spontaneous
  Country: US (occurrence: US)
  Receive Date: 20220304
  Receipt Date: 20220616
  Transmission Date: 20220721
  Serious: No
  Sender: FDA-Public Use
  Company Number: US-SANOFI-00993764

PATIENT
  Age: 48 Year
  Sex: Male

DRUGS (1)
  1. SOLIQUA 100/33 [Suspect]
     Active Substance: INSULIN GLARGINE\LIXISENATIDE
     Indication: Type 2 diabetes mellitus
     Dosage: UNK,BID, DRUG TREATMENT DURATION: TWICE

REACTIONS (2)
  - Blood glucose increased [Unknown]
  - Device breakage [Unknown]

NARRATIVE: CASE EVENT DATE: 20220224
